FAERS Safety Report 11757374 (Version 1)
Quarter: 2015Q4

REPORT INFORMATION
  Report Type: Spontaneous
  Country: US (occurrence: US)
  Receive Date: 20151120
  Receipt Date: 20151120
  Transmission Date: 20160304
  Serious: No
  Sender: FDA-Public Use
  Company Number: US-AMGEN-USASP2015122789

PATIENT
  Age: 54 Year
  Sex: Female

DRUGS (1)
  1. ENBREL [Suspect]
     Active Substance: ETANERCEPT
     Indication: PSORIASIS
     Dosage: 50 MG, QWK (WEEKLY)
     Route: 058
     Dates: start: 20111121, end: 20120723

REACTIONS (3)
  - Arthritis [Recovering/Resolving]
  - Drug effect incomplete [Recovering/Resolving]
  - Drug ineffective [Recovering/Resolving]
